FAERS Safety Report 4528227-9 (Version None)
Quarter: 2004Q4

REPORT INFORMATION
  Report Type: 
  Country: None (occurrence: None)
  Receive Date: 20041210
  Receipt Date: 20041122
  Transmission Date: 20050328
  Serious: Yes (Hospitalization)
  Sender: FDA-Public Use
  Company Number: B0358110A

PATIENT
  Age: 62 Year
  Sex: Female

DRUGS (5)
  1. WELLBUTRIN [Suspect]
     Indication: DEPRESSION
  2. SERTRALINE HCL [Suspect]
     Indication: DEPRESSION
  3. PIRACETAM (FORMULATION UNKNOWN) (PIRACETAM) [Suspect]
  4. VENLAFAXINE HCL [Suspect]
  5. FLUOXETINE [Concomitant]

REACTIONS (18)
  - ATAXIA [None]
  - AUTONOMIC NERVOUS SYSTEM IMBALANCE [None]
  - CEREBRAL ATROPHY [None]
  - CONDITION AGGRAVATED [None]
  - COORDINATION ABNORMAL [None]
  - DEPRESSED LEVEL OF CONSCIOUSNESS [None]
  - DIARRHOEA [None]
  - ELECTROCARDIOGRAM QT PROLONGED [None]
  - ELECTROCARDIOGRAM REPOLARISATION ABNORMALITY [None]
  - FAECAL INCONTINENCE [None]
  - FALL [None]
  - HALLUCINATION, AUDITORY [None]
  - HALLUCINATION, VISUAL [None]
  - INSOMNIA [None]
  - MENTAL STATUS CHANGES [None]
  - MYOCLONUS [None]
  - SEROTONIN SYNDROME [None]
  - URINARY INCONTINENCE [None]
